FAERS Safety Report 4416804-5 (Version None)
Quarter: 2004Q3

REPORT INFORMATION
  Report Type: 
  Country: None (occurrence: None)
  Receive Date: 20040802
  Receipt Date: 20040720
  Transmission Date: 20050211
  Serious: Yes (Hospitalization, Other)
  Sender: FDA-Public Use
  Company Number: 2004049466

PATIENT
  Sex: Male
  Weight: 63.5036 kg

DRUGS (6)
  1. VIAGRA [Suspect]
     Indication: ILL-DEFINED DISORDER
     Dosage: ORAL
     Route: 048
  2. AMLODIPINE BESYLATE [Concomitant]
  3. DOXAZOSIN MESYLATE [Concomitant]
  4. LEVOTHYROXINE SODIUM [Concomitant]
  5. DOXAZOSIN (DOXAZOSIN) [Concomitant]
  6. PENTOXIFYLLINE [Concomitant]

REACTIONS (3)
  - CARDIAC OPERATION [None]
  - DRUG INEFFECTIVE [None]
  - HERNIA [None]
